FAERS Safety Report 6602118-1 (Version None)
Quarter: 2010Q1

REPORT INFORMATION
  Report Type: 
  Country: None (occurrence: None)
  Receive Date: 20100225
  Receipt Date: 20100217
  Transmission Date: 20100710
  Serious: Yes (Other)
  Sender: FDA-Public Use
  Company Number: PHBS2007JP15535

PATIENT
  Age: 57 Year
  Sex: Female

DRUGS (1)
  1. DICLOFENAC SODIUM [Suspect]
     Indication: RHEUMATOID ARTHRITIS
     Dosage: 75 MG/DAY
     Route: 048

REACTIONS (16)
  - DECREASED APPETITE [None]
  - DUODENAL STENOSIS [None]
  - DUODENAL ULCER [None]
  - ENDOSCOPY ABNORMAL [None]
  - GASTROINTESTINAL DISORDER [None]
  - GASTROINTESTINAL ENDOSCOPIC THERAPY [None]
  - HAEMOGLOBIN DECREASED [None]
  - HYPOALBUMINAEMIA [None]
  - HYPOPROTEINAEMIA [None]
  - JEJUNAL ULCER [None]
  - NAUSEA [None]
  - OVERGROWTH BACTERIAL [None]
  - PROTEIN URINE PRESENT [None]
  - SMALL INTESTINAL STENOSIS [None]
  - VOMITING [None]
  - WEIGHT DECREASED [None]
